FAERS Safety Report 4373231-7 (Version None)
Quarter: 2004Q2

REPORT INFORMATION
  Report Type: 
  Country: None (occurrence: None)
  Receive Date: 20040603
  Receipt Date: 20040528
  Transmission Date: 20050107
  Serious: Yes (Death)
  Sender: FDA-Public Use
  Company Number: MK200405-0111-2

PATIENT
  Age: 46 Year
  Sex: Female

DRUGS (6)
  1. METHADONE HCL [Suspect]
     Dates: start: 20030509
  2. ALPRAZOLAM [Concomitant]
  3. PROPOXYPHENE [Concomitant]
  4. DIPHENHYDRAMINE HCL [Concomitant]
  5. CARISOPRODOL [Concomitant]
  6. MEPROBAMATE [Concomitant]

REACTIONS (2)
  - COMPLETED SUICIDE [None]
  - DRUG SCREEN POSITIVE [None]
